FAERS Safety Report 26048767 (Version 1)
Quarter: 2025Q4

REPORT INFORMATION
  Report Type: Spontaneous
  Country: EU (occurrence: EU)
  Receive Date: 20251115
  Receipt Date: 20251115
  Transmission Date: 20260118
  Serious: Yes (Death, Life-Threatening, Hospitalization)
  Sender: ACCORD
  Company Number: EU-MLMSERVICE-20251029-PI692170-00117-5

PATIENT
  Age: 33 Year
  Sex: Male

DRUGS (3)
  1. ETOPOSIDE [Suspect]
     Active Substance: ETOPOSIDE
     Indication: Haemophagocytic lymphohistiocytosis
  2. DEXAMETHASONE [Suspect]
     Active Substance: DEXAMETHASONE
     Indication: Haemophagocytic lymphohistiocytosis
  3. ALEMTUZUMAB [Concomitant]
     Active Substance: ALEMTUZUMAB
     Indication: Peripheral T-cell lymphoma unspecified stage IV

REACTIONS (4)
  - Tumour lysis syndrome [Fatal]
  - Respiratory failure [Fatal]
  - Metabolic acidosis [Fatal]
  - Off label use [Unknown]
